FAERS Safety Report 4356562-6 (Version None)
Quarter: 2004Q2

REPORT INFORMATION
  Report Type: 
  Country: None (occurrence: None)
  Receive Date: 20040506
  Receipt Date: 20040428
  Transmission Date: 20050107
  Serious: Yes (Hospitalization)
  Sender: FDA-Public Use
  Company Number: 2004-04-0408

PATIENT
  Age: 64 Year
  Sex: Male

DRUGS (8)
  1. AERIUS (DESLORATADINE) TABLETS 'LIKE CLARINEX' [Suspect]
     Indication: HYPERSENSITIVITY
     Dosage: SEE IMAGE ORAL
     Route: 048
     Dates: start: 20031019, end: 20031001
  2. AERIUS (DESLORATADINE) TABLETS 'LIKE CLARINEX' [Suspect]
     Indication: PROPHYLAXIS
     Dosage: SEE IMAGE ORAL
     Route: 048
     Dates: start: 20031019, end: 20031001
  3. AERIUS (DESLORATADINE) TABLETS 'LIKE CLARINEX' [Suspect]
     Indication: HYPERSENSITIVITY
     Dosage: SEE IMAGE ORAL
     Route: 048
     Dates: start: 20031019, end: 20031019
  4. AERIUS (DESLORATADINE) TABLETS 'LIKE CLARINEX' [Suspect]
     Indication: PROPHYLAXIS
     Dosage: SEE IMAGE ORAL
     Route: 048
     Dates: start: 20031019, end: 20031019
  5. AERIUS (DESLORATADINE) TABLETS 'LIKE CLARINEX' [Suspect]
     Indication: HYPERSENSITIVITY
     Dosage: SEE IMAGE ORAL
     Route: 048
     Dates: start: 20031021
  6. AERIUS (DESLORATADINE) TABLETS 'LIKE CLARINEX' [Suspect]
     Indication: PROPHYLAXIS
     Dosage: SEE IMAGE ORAL
     Route: 048
     Dates: start: 20031021
  7. ATACAND [Concomitant]
  8. CELESTAMINE TAB [Concomitant]

REACTIONS (6)
  - ANGIONEUROTIC OEDEMA [None]
  - ERYTHEMA [None]
  - HAEMATOMA [None]
  - LOSS OF CONSCIOUSNESS [None]
  - MALAISE [None]
  - PRURITUS [None]
